FAERS Safety Report 8151432-X (Version None)
Quarter: 2012Q1

REPORT INFORMATION
  Report Type: 
  Country: None (occurrence: None)
  Receive Date: 20120220
  Receipt Date: 20120207
  Transmission Date: 20120608
  Serious: Yes (Other)
  Sender: FDA-Public Use
  Company Number: US-ROCHE-1038592

PATIENT

DRUGS (2)
  1. AVASTIN [Suspect]
     Indication: HEAD AND NECK CANCER
     Route: 041
  2. DOCETAXEL [Suspect]
     Indication: HEAD AND NECK CANCER

REACTIONS (2)
  - DYSPHAGIA [None]
  - THROMBOSIS [None]
